FAERS Safety Report 9463128 (Version 1)
Quarter: 2013Q3

REPORT INFORMATION
  Report Type: Report from Study
  Country: DE (occurrence: DE)
  Receive Date: 20130816
  Receipt Date: 20130816
  Transmission Date: 20140515
  Serious: Yes (Hospitalization)
  Sender: FDA-Public Use
  Company Number: PHHY2013DE064917

PATIENT
  Age: 59 Year
  Sex: Female

DRUGS (1)
  1. SIGNIFOR [Suspect]
     Dosage: 0.6 MG, BID
     Dates: start: 201201, end: 201209

REACTIONS (2)
  - Diabetes mellitus [Unknown]
  - Glycosylated haemoglobin increased [Unknown]
